FAERS Safety Report 18904569 (Version 4)
Quarter: 2021Q1

REPORT INFORMATION
  Report Type: Spontaneous
  Country: JP (occurrence: JP)
  Receive Date: 20210217
  Receipt Date: 20210323
  Transmission Date: 20210420
  Serious: Yes (Hospitalization, Other)
  Sender: FDA-Public Use
  Company Number: NVSJ2021JP002439

PATIENT
  Age: 43 Year
  Sex: Female
  Weight: 58 kg

DRUGS (3)
  1. PRIMOBOLAN [Suspect]
     Active Substance: METHENOLONE
     Indication: APLASTIC ANAEMIA
     Dosage: UNK
     Route: 048
     Dates: start: 1997, end: 20170517
  2. PRIMOBOLAN [Suspect]
     Active Substance: METHENOLONE
     Dosage: 20 MG
     Route: 048
     Dates: start: 20180417
  3. NEORAL [Suspect]
     Active Substance: CYCLOSPORINE
     Indication: APLASTIC ANAEMIA
     Dosage: 150 MG
     Route: 048
     Dates: start: 1997, end: 20170906

REACTIONS (6)
  - Product use in unapproved indication [Unknown]
  - Disease progression [Recovered/Resolved]
  - Aplastic anaemia [Recovered/Resolved]
  - Maternal exposure during pregnancy [Unknown]
  - Renal impairment [Not Recovered/Not Resolved]
  - Premature delivery [Recovering/Resolving]

NARRATIVE: CASE EVENT DATE: 2003
